FAERS Safety Report 18562482 (Version 1)
Quarter: 2020Q4

REPORT INFORMATION
  Report Type: Spontaneous
  Country: PK (occurrence: PK)
  Receive Date: 20201201
  Receipt Date: 20201201
  Transmission Date: 20210114
  Serious: Yes (Other)
  Sender: FDA-Public Use
  Company Number: PK-PACIRA-202000520

PATIENT
  Age: 65 Year
  Sex: Female

DRUGS (4)
  1. NORMAL SALINE [Concomitant]
     Active Substance: SODIUM CHLORIDE
     Indication: NERVE BLOCK
     Dosage: 10 CC FOR DILUTION OF 266 MG LIPOSOMAL BUPIVACAINE  (TOTAL OF 30 CC)
     Route: 050
  2. OPIOID DERIVATES [Concomitant]
     Indication: POSTOPERATIVE ANALGESIA
     Dosage: NOT PROVIDED
  3. EXPAREL [Suspect]
     Active Substance: BUPIVACAINE
     Indication: NERVE BLOCK
     Dosage: 266 MG DILUTED WITH 10CC NORMAL SALINE (TOTAL OF 30 CC)
     Route: 050
  4. KETOROLAC [Concomitant]
     Active Substance: KETOROLAC TROMETHAMINE
     Indication: POSTOPERATIVE ANALGESIA
     Dosage: NOT PROVIDED

REACTIONS (1)
  - Device dislocation [Unknown]
